FAERS Safety Report 5664129-2 (Version None)
Quarter: 2008Q1

REPORT INFORMATION
  Report Type: 
  Country: None (occurrence: None)
  Receive Date: 20080312
  Receipt Date: 20080227
  Transmission Date: 20080703
  Serious: Yes (Hospitalization)
  Sender: FDA-Public Use
  Company Number: 2008BI001625

PATIENT
  Sex: Female

DRUGS (1)
  1. TYSABRI [Suspect]
     Indication: MULTIPLE SCLEROSIS
     Dosage: 300 MG;QM; IV
     Route: 042
     Dates: start: 20070807, end: 20080101

REACTIONS (6)
  - ACCIDENTAL OVERDOSE [None]
  - BACK PAIN [None]
  - FAECAL INCONTINENCE [None]
  - INSOMNIA [None]
  - PAIN IN EXTREMITY [None]
  - URINARY INCONTINENCE [None]
